FAERS Safety Report 18119277 (Version 1)
Quarter: 2020Q3

REPORT INFORMATION
  Report Type: Spontaneous
  Country: CA (occurrence: CA)
  Receive Date: 20200806
  Receipt Date: 20200806
  Transmission Date: 20201103
  Serious: Yes (Hospitalization, Other)
  Sender: FDA-Public Use
  Company Number: CA-LUPIN PHARMACEUTICALS INC.-2020-04418

PATIENT
  Age: 8 Year
  Sex: Male

DRUGS (1)
  1. TRIMETHOPRIM. [Suspect]
     Active Substance: TRIMETHOPRIM
     Indication: PRODUCT USED FOR UNKNOWN INDICATION
     Dosage: UNK
     Route: 065

REACTIONS (7)
  - Stevens-Johnson syndrome [Recovered/Resolved]
  - Eye ulcer [Unknown]
  - Toxic epidermal necrolysis [Recovered/Resolved]
  - Urinary tract infection [Unknown]
  - Pigmentation disorder [Unknown]
  - Nosocomial infection [Unknown]
  - Ocular pemphigoid [Unknown]
